FAERS Safety Report 19077714 (Version 1)
Quarter: 2021Q1

REPORT INFORMATION
  Report Type: Spontaneous
  Country: JP (occurrence: JP)
  Receive Date: 20210331
  Receipt Date: 20210331
  Transmission Date: 20210420
  Serious: Yes (Hospitalization, Other)
  Sender: FDA-Public Use
  Company Number: JP-CELGENEUS-JPN-20201204112

PATIENT
  Age: 90 Year
  Sex: Female
  Weight: 42.8 kg

DRUGS (3)
  1. RABEPRAZOLE SODIUM. [Concomitant]
     Active Substance: RABEPRAZOLE SODIUM
     Indication: PROPHYLAXIS
     Dosage: 10 MILLIGRAM
     Route: 048
     Dates: start: 20200917
  2. REVLIMID [Suspect]
     Active Substance: LENALIDOMIDE
     Indication: 5Q MINUS SYNDROME
     Dosage: 5 MILLIGRAM
     Route: 048
     Dates: start: 20200813, end: 20201105
  3. SPIRONOLACTONE. [Concomitant]
     Active Substance: SPIRONOLACTONE
     Indication: ADVERSE EVENT
     Dosage: 50 MILLIGRAM
     Route: 048
     Dates: start: 20200827

REACTIONS (6)
  - Erythema [Recovered/Resolved]
  - Pneumonia [Unknown]
  - Generalised oedema [Recovered/Resolved]
  - Platelet count decreased [Recovered/Resolved]
  - Hypophosphataemia [Recovering/Resolving]
  - Hypokalaemia [Recovering/Resolving]

NARRATIVE: CASE EVENT DATE: 2020
